FAERS Safety Report 6307704-4 (Version None)
Quarter: 2009Q3

REPORT INFORMATION
  Report Type: 
  Country: None (occurrence: None)
  Receive Date: 20090813
  Receipt Date: 20090803
  Transmission Date: 20100115
  Serious: Yes (Death, Life-Threatening, Hospitalization, Other)
  Sender: FDA-Public Use
  Company Number: PT-AMGEN-QUU358361

PATIENT
  Sex: Female
  Weight: 59 kg

DRUGS (4)
  1. NEULASTA [Suspect]
     Indication: CHEMOTHERAPY
     Route: 042
     Dates: start: 20090715
  2. TAXOTERE [Concomitant]
     Dates: start: 20090714, end: 20090714
  3. ADRIAMYCIN PFS [Concomitant]
     Dates: start: 20090714, end: 20090714
  4. CYCLOPHOSPHAMIDE [Concomitant]
     Dates: start: 20090714, end: 20090714

REACTIONS (9)
  - ANISEIKONIA [None]
  - ASCITES [None]
  - COMA [None]
  - FEBRILE NEUTROPENIA [None]
  - LEUKOPENIA [None]
  - METASTASES TO LIVER [None]
  - MUCOSAL INFLAMMATION [None]
  - RENAL FAILURE [None]
  - URINE FLOW DECREASED [None]
